FAERS Safety Report 8463697-5 (Version None)
Quarter: 2012Q2

REPORT INFORMATION
  Report Type: 
  Country: None (occurrence: None)
  Receive Date: 20120625
  Receipt Date: 20120618
  Transmission Date: 20120825
  Serious: Yes (Disabling, Other)
  Sender: FDA-Public Use
  Company Number: US-JNJFOC-20120507856

PATIENT
  Sex: Male

DRUGS (2)
  1. TYLENOL (CAPLET) [Suspect]
     Route: 065
  2. TYLENOL (CAPLET) [Suspect]
     Indication: PYREXIA
     Dosage: ^USED REGULARLY^ AS REQUIRED
     Route: 065
     Dates: start: 19980101

REACTIONS (4)
  - IMPAIRED WORK ABILITY [None]
  - LIVER INJURY [None]
  - PNEUMONIA [None]
  - DRUG INEFFECTIVE [None]
